FAERS Safety Report 8101507-6 (Version None)
Quarter: 2012Q1

REPORT INFORMATION
  Report Type: 
  Country: None (occurrence: None)
  Receive Date: 20120129
  Receipt Date: 20111006
  Transmission Date: 20120608
  Serious: No
  Sender: FDA-Public Use
  Company Number: US-ABBOTT-11P-163-0863073-00

PATIENT
  Sex: Female
  Weight: 60.382 kg

DRUGS (5)
  1. TRAMADOL HCL [Concomitant]
     Indication: ANKYLOSING SPONDYLITIS
  2. DICLOFENAC SODIUM [Concomitant]
     Indication: ANKYLOSING SPONDYLITIS
  3. OMEPRAZOLE [Concomitant]
     Indication: GASTRIC DISORDER
  4. OMEPRAZOLE [Concomitant]
     Indication: PROPHYLAXIS
  5. HUMIRA [Suspect]
     Indication: ANKYLOSING SPONDYLITIS
     Dates: start: 20110901

REACTIONS (1)
  - MENSTRUATION DELAYED [None]
